FAERS Safety Report 10929706 (Version 1)
Quarter: 2015Q1

REPORT INFORMATION
  Report Type: Spontaneous
  Country: US (occurrence: US)
  Receive Date: 20150319
  Receipt Date: 20150319
  Transmission Date: 20150721
  Serious: No
  Sender: FDA-Public Use
  Company Number: US-AMGEN-USASP2015024694

PATIENT

DRUGS (1)
  1. ENBREL [Suspect]
     Active Substance: ETANERCEPT
     Indication: PRODUCT USED FOR UNKNOWN INDICATION
     Dosage: UNK
     Route: 065

REACTIONS (8)
  - Rash [Unknown]
  - Sinus headache [Unknown]
  - Joint swelling [Unknown]
  - Arthralgia [Unknown]
  - Dry eye [Unknown]
  - Dry mouth [Unknown]
  - Erythema [Unknown]
  - Fatigue [Unknown]
